FAERS Safety Report 8921362 (Version 1)
Quarter: 2012Q4

REPORT INFORMATION
  Report Type: Report from Study
  Country: US (occurrence: US)
  Receive Date: 20121122
  Receipt Date: 20121122
  Transmission Date: 20130627
  Serious: Yes (Hospitalization)
  Sender: FDA-Public Use
  Company Number: US-BRISTOL-MYERS SQUIBB COMPANY-17126020

PATIENT
  Age: 50 Year
  Sex: Male
  Weight: 88.45 kg

DRUGS (4)
  1. IPILIMUMAB [Suspect]
     Indication: MALIGNANT MELANOMA
     Dosage: last dose:2Oct12,no of courses:2
removed from protocol on 13Nov2012
     Route: 042
     Dates: start: 20120911
  2. AVALIDE [Concomitant]
  3. LEXAPRO [Concomitant]
  4. LORAZEPAM [Concomitant]

REACTIONS (1)
  - Pyrexia [Recovered/Resolved]
